FAERS Safety Report 23079467 (Version 3)
Quarter: 2025Q1

REPORT INFORMATION
  Report Type: Spontaneous
  Country: US (occurrence: US)
  Receive Date: 20231018
  Receipt Date: 20250108
  Transmission Date: 20250408
  Serious: Yes (Hospitalization)
  Sender: SANOFI AVENTIS
  Company Number: US-SA-SAC20231017000096

PATIENT
  Age: 87 Year
  Sex: Male
  Weight: 95.2 kg

DRUGS (30)
  1. DUPIXENT [Suspect]
     Active Substance: DUPILUMAB
     Indication: Asthma
     Dosage: 300 MG, QOW
     Route: 058
  2. ALLEGRA ALLERGY [Concomitant]
     Active Substance: FEXOFENADINE HYDROCHLORIDE
  3. MAGNESIUM OXIDE [Concomitant]
     Active Substance: MAGNESIUM OXIDE
  4. VITAMIN D2 [Concomitant]
     Active Substance: ERGOCALCIFEROL
  5. SPIRIVA RESPIMAT [Concomitant]
     Active Substance: TIOTROPIUM BROMIDE
  6. ADVAIR HFA [Concomitant]
     Active Substance: FLUTICASONE PROPIONATE\SALMETEROL XINAFOATE
  7. ALBUTEROL SULFATE [Concomitant]
     Active Substance: ALBUTEROL SULFATE
  8. VITAMINS NOS [Concomitant]
     Active Substance: VITAMINS
     Dosage: UNK, QD
  9. VITAMINS NOS [Concomitant]
     Active Substance: VITAMINS
  10. NITROGLYCERIN [Concomitant]
     Active Substance: NITROGLYCERIN
  11. LUMIGAN [Concomitant]
     Active Substance: BIMATOPROST
  12. MELATONIN [Concomitant]
     Active Substance: MELATONIN
  13. HYDROXYZINE HYDROCHLORIDE [Concomitant]
     Active Substance: HYDROXYZINE HYDROCHLORIDE
  14. GABAPENTIN [Concomitant]
     Active Substance: GABAPENTIN
  15. IRON [Concomitant]
     Active Substance: IRON
  16. FENOFIBRATE [Concomitant]
     Active Substance: FENOFIBRATE
  17. IPRATROPIUM [Concomitant]
     Active Substance: IPRATROPIUM
  18. ALBUTEROL SULFATE [Concomitant]
     Active Substance: ALBUTEROL SULFATE
  19. ATORVASTATIN CALCIUM [Concomitant]
     Active Substance: ATORVASTATIN CALCIUM
  20. ASPIRIN [Concomitant]
     Active Substance: ASPIRIN
  21. AUGMENTIN XR [Concomitant]
     Active Substance: AMOXICILLIN\CLAVULANATE POTASSIUM
  22. VITAMIN C [Concomitant]
     Active Substance: ASCORBIC ACID
  23. ASPIRIN [Concomitant]
     Active Substance: ASPIRIN
  24. LASIX [Concomitant]
     Active Substance: FUROSEMIDE
  25. VITAMINS NOS [Concomitant]
     Active Substance: VITAMINS
     Dosage: UNK UNK, QD
  26. PULMICORT TURBUHALER [Concomitant]
     Active Substance: BUDESONIDE
  27. FERROUS SULFATE [Concomitant]
     Active Substance: FERROUS SULFATE
  28. ALBUTEROL SULFATE [Concomitant]
     Active Substance: ALBUTEROL SULFATE
  29. ELIQUIS [Concomitant]
     Active Substance: APIXABAN
  30. IPRATROPIUM BROMIDE AND ALBUTEROL SULFATE [Concomitant]
     Active Substance: ALBUTEROL SULFATE\IPRATROPIUM BROMIDE

REACTIONS (3)
  - Asthma [Recovered/Resolved]
  - Cough [Recovered/Resolved]
  - Dyspnoea [Not Recovered/Not Resolved]

NARRATIVE: CASE EVENT DATE: 20241201
